FAERS Safety Report 21746092 (Version 1)
Quarter: 2022Q4

REPORT INFORMATION
  Report Type: Report from Study
  Country: US (occurrence: US)
  Receive Date: 20221219
  Receipt Date: 20221219
  Transmission Date: 20230113
  Serious: Yes (Other)
  Sender: FDA-Public Use
  Company Number: US-SHIRE-US202008210

PATIENT
  Sex: Male

DRUGS (1)
  1. HUMAN IMMUNOGLOBULIN G\HYALURONIDASE RECOMBINANT HUMAN [Suspect]
     Active Substance: HUMAN IMMUNOGLOBULIN G\HYALURONIDASE RECOMBINANT HUMAN
     Indication: Selective IgG subclass deficiency
     Dosage: UNK
     Route: 065

REACTIONS (10)
  - Loss of consciousness [Unknown]
  - Acetabulum fracture [Unknown]
  - Diabetes mellitus inadequate control [Unknown]
  - Hepatic steatosis [Unknown]
  - Road traffic accident [Unknown]
  - Gait inability [Unknown]
  - Eczema [Unknown]
  - Viral infection [Unknown]
  - Product use issue [Unknown]
  - Insurance issue [Unknown]
